FAERS Safety Report 6531450-5 (Version None)
Quarter: 2010Q1

REPORT INFORMATION
  Report Type: 
  Country: None (occurrence: None)
  Receive Date: 20100108
  Receipt Date: 20091231
  Transmission Date: 20100710
  Serious: No
  Sender: FDA-Public Use
  Company Number: A0834145A

PATIENT
  Sex: Female

DRUGS (5)
  1. TYKERB [Suspect]
     Indication: DRUG USE FOR UNKNOWN INDICATION
     Dosage: 750MG PER DAY
     Route: 048
     Dates: start: 20091116
  2. RADIATION THERAPY [Suspect]
  3. CHEMOTHERAPY [Concomitant]
     Route: 042
  4. ZOMETA [Concomitant]
  5. IV HYDRATION [Concomitant]
     Route: 042

REACTIONS (8)
  - DIARRHOEA [None]
  - DRY MOUTH [None]
  - DRY SKIN [None]
  - FATIGUE [None]
  - HYPERSOMNIA [None]
  - NAUSEA [None]
  - PERIPHERAL COLDNESS [None]
  - SLEEP DISORDER [None]
